FAERS Safety Report 22005763 (Version 1)
Quarter: 2023Q1

REPORT INFORMATION
  Report Type: Spontaneous
  Country: DE (occurrence: None)
  Receive Date: 20230217
  Receipt Date: 20230217
  Transmission Date: 20230418
  Serious: Yes (Other)
  Sender: FDA-Public Use
  Company Number: 2023A036872

PATIENT
  Age: 72 Year
  Sex: Male
  Weight: 96 kg

DRUGS (22)
  1. DAPAGLIFLOZIN [Suspect]
     Active Substance: DAPAGLIFLOZIN
     Indication: Diabetes mellitus
     Route: 048
  2. METFORMIN [Concomitant]
     Active Substance: METFORMIN HYDROCHLORIDE
     Dosage: 50/850 MG
     Dates: start: 201805
  3. METFORMIN [Concomitant]
     Active Substance: METFORMIN HYDROCHLORIDE
  4. SITAGLIPTIN [Concomitant]
     Active Substance: SITAGLIPTIN
     Dosage: 25 (IN THE MEANTIME), CURRENTLY 50 MG
  5. VALSARTAN [Concomitant]
     Active Substance: VALSARTAN
     Dosage: 160
  6. AMLODIPINE [Concomitant]
     Active Substance: AMLODIPINE BESYLATE
     Dosage: 12.5
  7. RIVAROXABAN [Concomitant]
     Active Substance: RIVAROXABAN
  8. RIVAROXABAN [Concomitant]
     Active Substance: RIVAROXABAN
  9. SIMVASTATIN [Concomitant]
     Active Substance: SIMVASTATIN
     Dosage: 30
  10. ATORVASTATIN [Concomitant]
     Active Substance: ATORVASTATIN
     Dosage: 40
  11. CARVEDILOL [Concomitant]
     Active Substance: CARVEDILOL
     Dosage: 25
  12. TORSEMIDE [Concomitant]
     Active Substance: TORSEMIDE
     Dosage: 10
  13. CHOLECALCIFEROL [Concomitant]
     Active Substance: CHOLECALCIFEROL
     Dosage: 20000
  14. PNEUMOCOCCI [Concomitant]
     Dosage: ONCE WITH 13 VALENT VACCINE, BOOSTER DOSE AFTER 6-12 MONTHS WITH 23 VALENT VACCINE
  15. INFLUENZA VIRUS VACCINE [Concomitant]
     Active Substance: INFLUENZA VIRUS VACCINE
  16. IBUPROFEN [Concomitant]
     Active Substance: IBUPROFEN
     Dosage: 400 IN DAILY DOSES OF UP TO 1600 MG
  17. NOVAMINE SULFONE [Concomitant]
     Dosage: 500{IN THE FURTHER COURSE
  18. EMPAGLIFLOZIN [Concomitant]
     Active Substance: EMPAGLIFLOZIN
  19. LERCANIDIPINE [Concomitant]
     Active Substance: LERCANIDIPINE
  20. ASPIRIN [Concomitant]
     Active Substance: ASPIRIN
     Dosage: 100
  21. ALLOPURINOL [Concomitant]
     Active Substance: ALLOPURINOL
     Dosage: 300
  22. FINERENONE [Concomitant]
     Active Substance: FINERENONE

REACTIONS (4)
  - Cerebrovascular accident [Unknown]
  - Atrial fibrillation [Unknown]
  - Neuropathy peripheral [Unknown]
  - Blood pressure inadequately controlled [Unknown]

NARRATIVE: CASE EVENT DATE: 20220101
